FAERS Safety Report 13166818 (Version 1)
Quarter: 2017Q1

REPORT INFORMATION
  Report Type: Report from Study
  Country: US (occurrence: US)
  Receive Date: 20170131
  Receipt Date: 20170131
  Transmission Date: 20170428
  Serious: Yes (Hospitalization, Other)
  Sender: FDA-Public Use
  Company Number: US-NAPPMUNDI-USA-2017-0136175

PATIENT
  Age: 52 Year
  Sex: Male

DRUGS (1)
  1. OXYCODONE HYDROCHLORIDE. [Suspect]
     Active Substance: OXYCODONE HYDROCHLORIDE
     Indication: PAIN MANAGEMENT
     Dosage: 60 MG, TID
     Route: 048

REACTIONS (7)
  - Appendicitis perforated [Unknown]
  - Staphylococcal infection [Recovered/Resolved]
  - Diabetic ulcer [Recovered/Resolved]
  - Surgery [Unknown]
  - Off label use [Not Recovered/Not Resolved]
  - Nerve injury [Unknown]
  - Bursa disorder [Unknown]

NARRATIVE: CASE EVENT DATE: 201604
